FAERS Safety Report 25954019 (Version 3)
Quarter: 2025Q4

REPORT INFORMATION
  Report Type: Report from Study
  Country: US (occurrence: US)
  Receive Date: 20251023
  Receipt Date: 20251031
  Transmission Date: 20260118
  Serious: Yes (Death)
  Sender: ABBVIE
  Company Number: US-ABBVIE-6514231

PATIENT
  Sex: Female

DRUGS (3)
  1. DUOPA [Suspect]
     Active Substance: CARBIDOPA\LEVODOPA
     Indication: Parkinson^s disease
     Dosage: ONE CASSETTE VIA PEG-J FOR UP TO 16 HOURS EACH DAY.?MORNING DOSE: 12ML (RANGE 11-13ML), CONTINUOU...
     Route: 050
     Dates: start: 202410
  2. DUOPA [Suspect]
     Active Substance: CARBIDOPA\LEVODOPA
     Indication: Dyskinesia
     Route: 050
  3. DUOPA [Suspect]
     Active Substance: CARBIDOPA\LEVODOPA
     Indication: On and off phenomenon

REACTIONS (4)
  - Abdominal infection [Fatal]
  - Septic shock [Fatal]
  - Parkinson^s disease [Fatal]
  - Musculoskeletal disorder [Unknown]
